FAERS Safety Report 10783507 (Version 4)
Quarter: 2018Q1

REPORT INFORMATION
  Report Type: Report from Study
  Country: JP (occurrence: JP)
  Receive Date: 20150210
  Receipt Date: 20180330
  Transmission Date: 20180508
  Serious: Yes (Hospitalization, Disabling, Other)
  Sender: FDA-Public Use
  Company Number: PHHY2014JP075857

PATIENT
  Age: 55 Year
  Sex: Female
  Weight: 60 kg

DRUGS (3)
  1. GILENYA [Suspect]
     Active Substance: FINGOLIMOD HYDROCHLORIDE
     Indication: MULTIPLE SCLEROSIS
     Dosage: 0.5 MG, QD
     Route: 048
     Dates: start: 20121218
  2. BETAFERON [Concomitant]
     Active Substance: INTERFERON BETA-1B
     Indication: MULTIPLE SCLEROSIS
     Dosage: 8000000 IU, QD
     Route: 058
     Dates: start: 20100601, end: 20121217
  3. MERISLON [Concomitant]
     Active Substance: BETAHISTINE MESILATE
     Indication: FEELING ABNORMAL
     Dosage: 12 MG, QD
     Route: 048

REACTIONS (6)
  - Fall [Recovered/Resolved]
  - Electrocardiogram QT prolonged [Recovered/Resolved]
  - Electrocardiogram PR prolongation [Unknown]
  - Hypertension [Recovering/Resolving]
  - Motor dysfunction [Unknown]
  - Electrocardiogram RR interval prolonged [Unknown]

NARRATIVE: CASE EVENT DATE: 20121218
